FAERS Safety Report 8413379-0 (Version None)
Quarter: 2012Q2

REPORT INFORMATION
  Report Type: 
  Country: None (occurrence: None)
  Receive Date: 20120605
  Receipt Date: 20120530
  Transmission Date: 20120825
  Serious: Yes (Hospitalization)
  Sender: FDA-Public Use
  Company Number: US-CELGENEUS-163-21880-12053588

PATIENT
  Age: 85 Year
  Sex: Male
  Weight: 65.376 kg

DRUGS (1)
  1. REVLIMID [Suspect]
     Indication: MULTIPLE MYELOMA
     Dosage: 25 MILLIGRAM
     Route: 048
     Dates: start: 20110811, end: 20120218

REACTIONS (7)
  - CONSTIPATION [None]
  - HAEMATOCHEZIA [None]
  - DEEP VEIN THROMBOSIS [None]
  - DEMENTIA [None]
  - HYPOTENSION [None]
  - PANCYTOPENIA [None]
  - DIARRHOEA [None]
